FAERS Safety Report 8549914-1 (Version None)
Quarter: 2012Q3

REPORT INFORMATION
  Report Type: 
  Country: None (occurrence: None)
  Receive Date: 20120730
  Receipt Date: 20120523
  Transmission Date: 20120928
  Serious: No
  Sender: FDA-Public Use
  Company Number: US-GLAXOSMITHKLINE-A0978748A

PATIENT
  Sex: Female

DRUGS (2)
  1. SUMATRIPTAN SUCCINATE [Suspect]
     Indication: MIGRAINE
     Dosage: 100MG UNKNOWN
     Route: 048
     Dates: start: 20120523
  2. IMITREX [Suspect]
     Indication: MIGRAINE
     Dosage: 1SPR SINGLE DOSE
     Route: 045
     Dates: start: 20120523, end: 20120523

REACTIONS (3)
  - VOMITING [None]
  - THROAT IRRITATION [None]
  - DRUG INEFFECTIVE [None]
